FAERS Safety Report 7251430-4 (Version None)
Quarter: 2011Q1

REPORT INFORMATION
  Report Type: 
  Country: None (occurrence: None)
  Receive Date: 20110128
  Receipt Date: 20110115
  Transmission Date: 20110831
  Serious: Yes (Hospitalization, Other)
  Sender: FDA-Public Use
  Company Number: PHHY2011BR03759

PATIENT
  Sex: Female

DRUGS (16)
  1. SELOZOK [Concomitant]
     Indication: FATIGUE
     Dosage: 25 MG, 2 TABLETS A DAY
     Route: 048
  2. NATRILIX SR [Concomitant]
     Indication: DIURETIC THERAPY
     Dosage: 1 TABLET A DAY
     Route: 048
     Dates: start: 20070101
  3. ASPIRIN [Concomitant]
     Indication: BLOOD DISORDER
     Dosage: 100 MG, QD
     Route: 048
     Dates: start: 20080101
  4. LASIX [Concomitant]
     Indication: DIURETIC THERAPY
     Dosage: 40 MG, 1 TABLET A DAY
     Route: 048
     Dates: start: 20101201
  5. DORZOLAMIDE HYDROCHLORIDE [Concomitant]
     Dosage: 2 %, BID
     Dates: start: 20040101
  6. PILOCARPINE [Concomitant]
     Dosage: 1 %, BID
     Dates: start: 20040101
  7. DIOVAN [Suspect]
     Indication: HYPERTENSION
     Dosage: 160 MG, QD
     Route: 048
  8. SELOZOK [Concomitant]
     Indication: HEARING DISABILITY
  9. BROMOPRIDE [Concomitant]
     Indication: NAUSEA
     Dosage: 10 MG, 3 TABLETS A DAY
     Route: 048
     Dates: start: 20081201
  10. LYRICA [Concomitant]
     Indication: OSTEOPOROSIS
     Dosage: 75 MG, UNK
     Route: 048
     Dates: start: 20100101
  11. MONOCORDIL [Concomitant]
     Indication: FATIGUE
     Dosage: 20 MG, 2 TABLETS A DAY
     Route: 048
  12. PANTOPRAZOLE [Concomitant]
     Indication: ULCER
     Dosage: 20 MG, 2 TABLETS A DAY
     Route: 048
     Dates: start: 20070101
  13. SINVASTACOR [Concomitant]
     Indication: BLOOD CHOLESTEROL ABNORMAL
     Dosage: 20 MG, 1 TABLET A DAY
     Route: 048
  14. RIVOTRIL [Concomitant]
     Indication: ANXIETY
     Dosage: 2 MG, 1 TABLET A DAY
     Route: 048
  15. ADDERA D3 [Concomitant]
     Indication: OSTEOPOROSIS
     Dosage: 25 GTT, 25 DROPS A DAY
     Route: 048
     Dates: start: 20100901
  16. MONOCORDIL [Concomitant]
     Indication: HEARING DISABILITY

REACTIONS (13)
  - BACK PAIN [None]
  - URINARY TRACT INFECTION [None]
  - OESOPHAGITIS [None]
  - PARKINSONISM [None]
  - ABASIA [None]
  - BLADDER STENOSIS [None]
  - RENAL PAIN [None]
  - POSTURE ABNORMAL [None]
  - EYE MOVEMENT DISORDER [None]
  - SPEECH DISORDER [None]
  - BLOOD PRESSURE INCREASED [None]
  - FEELING COLD [None]
  - SINGLE FUNCTIONAL KIDNEY [None]
